FAERS Safety Report 23510932 (Version 1)
Quarter: 2024Q1

REPORT INFORMATION
  Report Type: Spontaneous
  Country: RU (occurrence: RU)
  Receive Date: 20240212
  Receipt Date: 20240212
  Transmission Date: 20240410
  Serious: Yes (Other)
  Sender: FDA-Public Use
  Company Number: RU-TAKEDA-2024TUS011472

PATIENT
  Age: 50 Year
  Sex: Female
  Weight: 50 kg

DRUGS (1)
  1. ENTYVIO [Suspect]
     Active Substance: VEDOLIZUMAB
     Indication: Crohn^s disease
     Dosage: 300 MILLIGRAM
     Route: 042
     Dates: start: 20190821, end: 20231214

REACTIONS (1)
  - Therapeutic product effect incomplete [Unknown]
